FAERS Safety Report 9049716 (Version 1)
Quarter: 2013Q1

REPORT INFORMATION
  Report Type: Report from Study
  Country: HU (occurrence: HU)
  Receive Date: 20130205
  Receipt Date: 20130205
  Transmission Date: 20140127
  Serious: Yes (Hospitalization, Other)
  Sender: FDA-Public Use
  Company Number: HU-BRISTOL-MYERS SQUIBB COMPANY-10948156

PATIENT
  Age: 43 Year
  Sex: Female

DRUGS (4)
  1. ARIPIPRAZOLE [Suspect]
     Indication: SCHIZOPHRENIA
     Route: 048
     Dates: start: 19980806
  2. LORAZEPAM [Concomitant]
     Route: 048
     Dates: start: 19980810
  3. TEMAZEPAM [Concomitant]
     Route: 048
     Dates: start: 19980810
  4. NORETHISTERONE [Concomitant]
     Route: 048
     Dates: start: 20010702

REACTIONS (5)
  - Menorrhagia [Recovered/Resolved]
  - Hysterectomy [Recovered/Resolved]
  - Leiomyoma [Recovered/Resolved]
  - Endometritis [Recovered/Resolved]
  - Cervix disorder [Recovered/Resolved]
